FAERS Safety Report 24163521 (Version 2)
Quarter: 2024Q3

REPORT INFORMATION
  Report Type: Spontaneous
  Country: NL (occurrence: None)
  Receive Date: 20240801
  Receipt Date: 20240808
  Transmission Date: 20241017
  Serious: Yes (Hospitalization)
  Sender: ASTRAZENECA
  Company Number: 2024A173629

PATIENT
  Age: 71 Year
  Sex: Male

DRUGS (9)
  1. OMEPRAZOLE [Suspect]
     Active Substance: OMEPRAZOLE
  2. CYANOCOBALAMIN [Suspect]
     Active Substance: CYANOCOBALAMIN
     Indication: Vitamin B12 deficiency
  3. CYANOCOBALAMIN [Suspect]
     Active Substance: CYANOCOBALAMIN
     Indication: Vitamin B12 deficiency
  4. PERINDOPRIL [Suspect]
     Active Substance: PERINDOPRIL
  5. FERROUS FUMARATE [Suspect]
     Active Substance: FERROUS FUMARATE
  6. HYDROXOCOBALAMIN [Suspect]
     Active Substance: HYDROXOCOBALAMIN
     Indication: Vitamin B12 deficiency
  7. FOLIC ACID [Suspect]
     Active Substance: FOLIC ACID
  8. LOPERAMIDE [Suspect]
     Active Substance: LOPERAMIDE
     Dosage: AS REQUIRED
  9. ACENOCOUMAROL [Suspect]
     Active Substance: ACENOCOUMAROL

REACTIONS (3)
  - Vitamin B12 deficiency [Recovered/Resolved]
  - Iron deficiency [Recovered/Resolved]
  - Excessive dietary supplement intake [Recovered/Resolved]
